FAERS Safety Report 5483312-2 (Version None)
Quarter: 2007Q4

REPORT INFORMATION
  Report Type: 
  Country: None (occurrence: None)
  Receive Date: 20071012
  Receipt Date: 20071001
  Transmission Date: 20080405
  Serious: Yes (Hospitalization, Disabling)
  Sender: FDA-Public Use
  Company Number: PHHO2007RU16346

PATIENT
  Age: 68 Year
  Sex: Female
  Weight: 87.8 kg

DRUGS (4)
  1. LMF237 VS VILDAGLIPTIN VS METFORMIN [Suspect]
     Indication: TYPE 2 DIABETES MELLITUS
     Dosage: CODE NOT BROKEN
     Route: 048
     Dates: start: 20070823
  2. ASPIRIN [Concomitant]
     Dates: start: 20060601
  3. ENALAPRIL MALEATE [Concomitant]
  4. METOPROLOL TARTRATE [Concomitant]

REACTIONS (4)
  - FALL [None]
  - FEMORAL NECK FRACTURE [None]
  - HIP FRACTURE [None]
  - PAIN IN EXTREMITY [None]
